FAERS Safety Report 7439289-3 (Version None)
Quarter: 2011Q2

REPORT INFORMATION
  Report Type: 
  Country: None (occurrence: None)
  Receive Date: 20110427
  Receipt Date: 20091204
  Transmission Date: 20111010
  Serious: Yes (Death, Hospitalization, Other)
  Sender: FDA-Public Use
  Company Number: US-BAYER-2011-010703

PATIENT
  Age: 76 Year
  Sex: Female
  Weight: 68.027 kg

DRUGS (14)
  1. PHENYLEPHRIN [Concomitant]
     Dosage: UNK
     Route: 042
     Dates: start: 19961122, end: 19961122
  2. PROTAMINE SULFATE [Concomitant]
     Dosage: UNK
     Route: 042
     Dates: start: 19961122, end: 19961122
  3. DIPHENHYDRAMINE [Concomitant]
     Dosage: UNK
     Route: 042
     Dates: start: 19961122, end: 19961122
  4. ALBUMEN [Concomitant]
     Dosage: 50 ML, UNK
     Dates: start: 19961122, end: 19961122
  5. LASIX [Concomitant]
     Dosage: UNK
     Route: 042
     Dates: start: 19961122, end: 19961122
  6. TRASYLOL [Suspect]
     Indication: CARDIAC OPERATION
     Dosage: 100CC THEN 25CC
     Route: 042
     Dates: start: 19961122, end: 19961122
  7. TRASYLOL [Suspect]
     Indication: CORONARY ARTERY BYPASS
  8. VERSED [Concomitant]
     Dosage: UNK
     Route: 042
     Dates: start: 19961122, end: 19961122
  9. ACETYLSALICYLIC ACID SRT [Concomitant]
     Dosage: 81 MG, UNK
  10. HEPARIN [Concomitant]
     Dosage: 10ML OF 1000 UNITS/ML
     Route: 042
     Dates: start: 19961122, end: 19961122
  11. KANAMYCIN SULFATE [Concomitant]
     Dosage: IRRIGATION
     Dates: start: 19961122, end: 19961122
  12. MANNITOL [Concomitant]
     Dosage: UNK
     Dates: start: 19961122, end: 19961122
  13. AMICAR [Concomitant]
     Dosage: 50.7CC
     Dates: start: 19961122, end: 19961122
  14. DOPAMINE HCL [Concomitant]
     Dosage: 3 MG, UNK
     Dates: start: 19961122, end: 19961122

REACTIONS (6)
  - RENAL FAILURE [None]
  - INJURY [None]
  - DEATH [None]
  - RENAL FAILURE ACUTE [None]
  - PAIN [None]
  - RENAL INJURY [None]
